FAERS Safety Report 8410194-9 (Version None)
Quarter: 2012Q2

REPORT INFORMATION
  Report Type: 
  Country: None (occurrence: None)
  Receive Date: 20120605
  Receipt Date: 20120530
  Transmission Date: 20120825
  Serious: Yes (Hospitalization)
  Sender: FDA-Public Use
  Company Number: PHHY2012AT030851

PATIENT
  Sex: Female
  Weight: 65 kg

DRUGS (8)
  1. VITAMIN D [Concomitant]
  2. DAFLON [Concomitant]
     Indication: VENOUS INSUFFICIENCY
     Dosage: 500 MG, BID
  3. CALCIPOT D3 [Concomitant]
     Indication: OSTEOPOROSIS
     Route: 048
  4. OXAZEPAM [Concomitant]
     Indication: INSOMNIA
     Dosage: 1 DF, QD
     Route: 048
  5. ZOLEDRONOC ACID [Suspect]
     Indication: OSTEOPOROSIS
     Dosage: 5 MG, UNK
     Route: 042
     Dates: start: 20120203
  6. OLEOVIT D3 [Concomitant]
     Indication: OSTEOPOROSIS
  7. CALCIUM [Concomitant]
  8. BISOPROLOL FUMARATE [Concomitant]
     Indication: CORONARY ARTERY DISEASE
     Dosage: 0.5 DF, BID (1/2-0-1/2 )

REACTIONS (3)
  - SCIATICA [None]
  - BONE PAIN [None]
  - NOCTURIA [None]
